FAERS Safety Report 11468927 (Version 1)
Quarter: 2015Q3

REPORT INFORMATION
  Report Type: Spontaneous
  Country: US (occurrence: None)
  Receive Date: 20150828
  Receipt Date: 20150828
  Transmission Date: 20151125
  Serious: Yes (Other)
  Sender: FDA-Public Use
  Company Number: AMAG201400305

PATIENT
  Age: 68 Year
  Sex: Female
  Weight: 58 kg

DRUGS (12)
  1. NIFEDIPINE. [Concomitant]
     Active Substance: NIFEDIPINE
  2. FERAHEME [Suspect]
     Active Substance: FERUMOXYTOL NON-STOICHIOMETRIC MAGNETITE
     Indication: IRON DEFICIENCY ANAEMIA
     Dosage: SINGLE
     Route: 042
     Dates: start: 20140805, end: 20150805
  3. FENOFIBRATE. [Concomitant]
     Active Substance: FENOFIBRATE
  4. ISOSORBIDE MONONITRATE. [Concomitant]
     Active Substance: ISOSORBIDE MONONITRATE
  5. CLONIDINE (CLONIDINE HYDROCHLORIDE) [Concomitant]
  6. TRICHLOROACETIC ACID [Concomitant]
     Active Substance: TRICHLOROACETIC ACID
  7. ZOFRAN (ONDANSETRON HYDROCHLORIDE) [Concomitant]
  8. ACTOS [Concomitant]
     Active Substance: PIOGLITAZONE HYDROCHLORIDE
  9. EDECRIN (ETACRYNIC ACID) [Concomitant]
  10. LOPERAMIDE (LOPERAMIDE HYDROCHLORIDE) [Concomitant]
  11. LOVASTATIN. [Concomitant]
     Active Substance: LOVASTATIN
  12. NORCO (HYDROCODONE BITARTRATE, PARACETAMOL) [Concomitant]

REACTIONS (7)
  - Bronchospasm [None]
  - Hypertension [None]
  - Tachycardia [None]
  - Hypersensitivity [None]
  - Anxiety [None]
  - Dyspnoea [None]
  - Flushing [None]

NARRATIVE: CASE EVENT DATE: 20140805
